FAERS Safety Report 4943521-5 (Version None)
Quarter: 2006Q1

REPORT INFORMATION
  Report Type: 
  Country: None (occurrence: None)
  Receive Date: 20060314
  Receipt Date: 20060307
  Transmission Date: 20060701
  Serious: Yes (Other)
  Sender: FDA-Public Use
  Company Number: US-JNJFOC-20060302037

PATIENT
  Sex: Female
  Weight: 75.9 kg

DRUGS (2)
  1. ELMIRON [Suspect]
     Indication: CYSTITIS INTERSTITIAL
     Route: 048
  2. TAMOXIFEN CITRATE [Suspect]

REACTIONS (1)
  - BLOOD CALCIUM INCREASED [None]
